FAERS Safety Report 6568005-2 (Version None)
Quarter: 2010Q1

REPORT INFORMATION
  Report Type: 
  Country: None (occurrence: None)
  Receive Date: 20100128
  Receipt Date: 20100115
  Transmission Date: 20100710
  Serious: Yes (Death)
  Sender: FDA-Public Use
  Company Number: CLOF-1000836

PATIENT
  Age: 66 Year
  Sex: Male
  Weight: 58.6 kg

DRUGS (9)
  1. CLOFARABINE (CLOFARABINE) [Suspect]
     Indication: MYELODYSPLASTIC SYNDROME
     Dosage: 25 MG, ORAL
     Route: 048
     Dates: start: 20091221, end: 20091225
  2. CLOFARABINE (CLOFARABINE) [Suspect]
     Indication: MYELODYSPLASTIC SYNDROME
     Dosage: 25 MG, ORAL
     Route: 048
     Dates: start: 20091116
  3. FLUCONAZOLE [Concomitant]
  4. POTASSIUM CHLORIDE [Concomitant]
  5. CIPROFLOXACIN [Concomitant]
  6. ALDACTONE [Concomitant]
  7. DIPHENHYDRAMINE, COMBINATIONS [Concomitant]
  8. NYSTATIN [Concomitant]
  9. PRILOSEC [Concomitant]

REACTIONS (16)
  - ABDOMINAL TENDERNESS [None]
  - BLOOD ALKALINE PHOSPHATASE INCREASED [None]
  - BLOOD POTASSIUM DECREASED [None]
  - BLOOD UREA INCREASED [None]
  - DECREASED APPETITE [None]
  - FATIGUE [None]
  - FEBRILE NEUTROPENIA [None]
  - HAEMATOCRIT DECREASED [None]
  - HAEMOGLOBIN DECREASED [None]
  - HEART RATE INCREASED [None]
  - OCULAR ICTERUS [None]
  - OEDEMA PERIPHERAL [None]
  - PLATELET COUNT DECREASED [None]
  - RED BLOOD CELL COUNT DECREASED [None]
  - RESPIRATORY RATE INCREASED [None]
  - WHITE BLOOD CELL COUNT DECREASED [None]
